FAERS Safety Report 8227887-9 (Version None)
Quarter: 2012Q1

REPORT INFORMATION
  Report Type: 
  Country: None (occurrence: None)
  Receive Date: 20120322
  Receipt Date: 20120312
  Transmission Date: 20120608
  Serious: Yes (Hospitalization)
  Sender: FDA-Public Use
  Company Number: FR-PFIZER INC-2012064867

PATIENT
  Age: 46 Year
  Sex: Male

DRUGS (9)
  1. AMLODIPINE BESYLATE AND OLMESARTAN MEDOXOMIL [Suspect]
     Dosage: UNK
     Route: 048
     Dates: end: 20120114
  2. PANTOPRAZOLE SODIUM [Suspect]
     Dosage: 20 MG, 2X/DAY
     Route: 048
     Dates: start: 20120101, end: 20120120
  3. PANTOPRAZOLE SODIUM [Suspect]
     Dosage: UNK
     Route: 048
     Dates: start: 20120201, end: 20120206
  4. LESCOL [Suspect]
     Dosage: UNK
     Route: 048
     Dates: end: 20120114
  5. AMLODIPINE [Suspect]
     Dosage: UNK
     Route: 048
     Dates: start: 20120201
  6. VENTOLIN [Suspect]
     Dosage: UNK
     Route: 055
     Dates: end: 20120114
  7. GAVISCON [Suspect]
     Dosage: UNK
     Route: 048
     Dates: end: 20120114
  8. PANTOPRAZOLE SODIUM [Suspect]
     Dosage: 20 MG, 2X/DAY
     Route: 048
     Dates: end: 20120114
  9. AMLODIPINE [Suspect]
     Dosage: UNK
     Dates: end: 20120114

REACTIONS (2)
  - EOSINOPHILIC PNEUMONIA [None]
  - ACUTE RESPIRATORY DISTRESS SYNDROME [None]
